FAERS Safety Report 5692818-2 (Version None)
Quarter: 2008Q2

REPORT INFORMATION
  Report Type: 
  Country: None (occurrence: None)
  Receive Date: 20080401
  Receipt Date: 20080315
  Transmission Date: 20081010
  Serious: Yes (Hospitalization, Other)
  Sender: FDA-Public Use
  Company Number: ADE2008-0152

PATIENT
  Age: 63 Year
  Sex: Female
  Weight: 60 kg

DRUGS (4)
  1. ATENOLOL [Suspect]
     Dosage: 50MG ONCE DAILY - ORAL
     Route: 048
  2. AZATHIOPRINE [Suspect]
     Dosage: 150MG 1 X DAY - ORAL
     Route: 048
     Dates: start: 20071217, end: 20080106
  3. MARIDEX OPHTHALMIC 1% [Suspect]
     Dosage: 2 X DAY - OPHTHALMIC
     Route: 047
     Dates: start: 20071001
  4. RAPAMUNE [Suspect]
     Dosage: 3.5MG X 1 DAY - ORAL
     Route: 048
     Dates: start: 20071001

REACTIONS (5)
  - DIARRHOEA [None]
  - DRUG HYPERSENSITIVITY [None]
  - RENAL FAILURE ACUTE [None]
  - RHABDOMYOLYSIS [None]
  - VOMITING [None]
